FAERS Safety Report 14995142 (Version 1)
Quarter: 2018Q2

REPORT INFORMATION
  Report Type: Spontaneous
  Country: RU (occurrence: RU)
  Receive Date: 20180611
  Receipt Date: 20180611
  Transmission Date: 20180711
  Serious: Yes (Other)
  Sender: FDA-Public Use
  Company Number: RU-BAYER-2018-108526

PATIENT
  Sex: Female

DRUGS (2)
  1. DOXORUBICIN [Concomitant]
     Active Substance: DOXORUBICIN
  2. NEXAVAR [Suspect]
     Active Substance: SORAFENIB
     Indication: HEPATOCELLULAR CARCINOMA
     Dosage: 400 MG, BID
     Dates: start: 201402, end: 2018

REACTIONS (13)
  - Blood pressure abnormal [None]
  - Nausea [None]
  - Fatigue [None]
  - Alanine aminotransferase increased [None]
  - Hepatic lesion [None]
  - Abdominal lymphadenopathy [None]
  - Aspartate aminotransferase increased [None]
  - Abdominal discomfort [None]
  - Hepatic necrosis [None]
  - General physical health deterioration [None]
  - Alpha 1 foetoprotein decreased [None]
  - Hepatocellular carcinoma [None]
  - Abdominal pain upper [None]

NARRATIVE: CASE EVENT DATE: 201705
